FAERS Safety Report 24258850 (Version 3)
Quarter: 2024Q4

REPORT INFORMATION
  Report Type: Report from Study
  Country: GB (occurrence: GB)
  Receive Date: 20240828
  Receipt Date: 20241009
  Transmission Date: 20250114
  Serious: No
  Sender: JOHNSON AND JOHNSON
  Company Number: GB-JNJFOC-20240836291

PATIENT
  Age: 21 Year
  Sex: Male

DRUGS (2)
  1. STELARA [Suspect]
     Active Substance: USTEKINUMAB
     Indication: Product used for unknown indication
     Route: 058
  2. STELARA [Suspect]
     Active Substance: USTEKINUMAB

REACTIONS (3)
  - Device deployment issue [Unknown]
  - SARS-CoV-2 test positive [Unknown]
  - Product dose omission issue [Unknown]

NARRATIVE: CASE EVENT DATE: 20240701
